FAERS Safety Report 4590249-X (Version None)
Quarter: 2005Q1

REPORT INFORMATION
  Report Type: 
  Country: None (occurrence: None)
  Receive Date: 20050224
  Receipt Date: 20050201
  Transmission Date: 20050727
  Serious: Yes (Other)
  Sender: FDA-Public Use
  Company Number: 200510400JP

PATIENT
  Age: 67 Year
  Sex: Male
  Weight: 68 kg

DRUGS (7)
  1. KETEK [Suspect]
     Indication: LARYNGOPHARYNGITIS
     Route: 048
     Dates: start: 20040722, end: 20040724
  2. PL GRAN. [Concomitant]
     Indication: LARYNGOPHARYNGITIS
     Route: 048
     Dates: start: 20040722, end: 20040724
  3. MEDICON [Concomitant]
     Indication: LARYNGOPHARYNGITIS
     Route: 048
     Dates: start: 20040722, end: 20040724
  4. APLACE [Concomitant]
     Indication: LARYNGOPHARYNGITIS
     Route: 048
     Dates: start: 20040722, end: 20040724
  5. ISODINE [Concomitant]
     Indication: LARYNGOPHARYNGITIS
     Dates: start: 20040722, end: 20040724
  6. WARFARIN SODIUM [Concomitant]
     Indication: ARRHYTHMIA
     Dosage: DOSE: 4.5TABLETS
     Route: 048
  7. SUNRYTHM [Concomitant]
     Indication: ARRHYTHMIA
     Dosage: DOSE: 2CAPSULES
     Route: 048

REACTIONS (7)
  - BALANCE DISORDER [None]
  - DIZZINESS [None]
  - FALL [None]
  - FEELING ABNORMAL [None]
  - LARYNGOPHARYNGITIS [None]
  - LOSS OF CONSCIOUSNESS [None]
  - VISION BLURRED [None]
